FAERS Safety Report 9921860 (Version 2)
Quarter: 2014Q1

REPORT INFORMATION
  Report Type: Spontaneous
  Country: US (occurrence: US)
  Receive Date: 20140225
  Receipt Date: 20140320
  Transmission Date: 20141002
  Serious: Yes (Hospitalization, Other)
  Sender: FDA-Public Use
  Company Number: US-MERCK-1402USA010554

PATIENT
  Age: 53 Year
  Sex: Female
  Weight: 126.71 kg

DRUGS (1)
  1. JANUVIA [Suspect]
     Indication: TYPE 2 DIABETES MELLITUS
     Dosage: 100 MG ONCE PER DAY
     Route: 048

REACTIONS (1)
  - Pancreatitis [Recovered/Resolved]
